FAERS Safety Report 12873362 (Version 1)
Quarter: 2016Q4

REPORT INFORMATION
  Report Type: Spontaneous
  Country: US (occurrence: US)
  Receive Date: 20161021
  Receipt Date: 20161021
  Transmission Date: 20170207
  Serious: No
  Sender: FDA-Public Use
  Company Number: US-ALLERGAN-1517684US

PATIENT
  Age: 77 Year
  Sex: Male
  Weight: 106.58 kg

DRUGS (2)
  1. FML [Suspect]
     Active Substance: FLUOROMETHOLONE
     Indication: LACRIMATION INCREASED
     Dosage: UNK, QHS
     Route: 047
     Dates: start: 20150804, end: 201508
  2. SYSTANE ULTRA [Concomitant]
     Active Substance: POLYETHYLENE GLYCOL 400\PROPYLENE GLYCOL
     Route: 047

REACTIONS (5)
  - Visual acuity reduced [Not Recovered/Not Resolved]
  - Off label use [Unknown]
  - Lacrimation increased [Not Recovered/Not Resolved]
  - Foreign body sensation in eyes [Not Recovered/Not Resolved]
  - Ocular hyperaemia [Not Recovered/Not Resolved]

NARRATIVE: CASE EVENT DATE: 20150804
